FAERS Safety Report 11440487 (Version 2)
Quarter: 2015Q3

REPORT INFORMATION
  Report Type: Report from Study
  Country: NL (occurrence: NL)
  Receive Date: 20150901
  Receipt Date: 20150917
  Transmission Date: 20151125
  Serious: Yes (Death)
  Sender: FDA-Public Use
  Company Number: PHHY2015NL104988

PATIENT
  Sex: Male

DRUGS (3)
  1. ACLASTA [Suspect]
     Active Substance: ZOLEDRONIC ACID
     Indication: OSTEOPOROSIS
     Dosage: 5 MG, (ONCE EVERY 52 WEEKS)
     Route: 042
     Dates: start: 20110927
  2. ACLASTA [Suspect]
     Active Substance: ZOLEDRONIC ACID
     Dosage: 5 MG, (ONCE EVERY 52 WEEKS)
     Route: 042
     Dates: start: 20140915
  3. ACLASTA [Suspect]
     Active Substance: ZOLEDRONIC ACID
     Dosage: 5 MG, (ONCE EVERY 52 WEEKS)
     Route: 042
     Dates: start: 20130916

REACTIONS (3)
  - Prostate cancer [Fatal]
  - Pathological fracture [Fatal]
  - Concomitant disease aggravated [Fatal]
